FAERS Safety Report 10946732 (Version 1)
Quarter: 2015Q1

REPORT INFORMATION
  Report Type: Spontaneous
  Country: US (occurrence: None)
  Receive Date: 20150212
  Receipt Date: 20150212
  Transmission Date: 20150721
  Serious: No
  Sender: FDA-Public Use
  Company Number: TPA2011A02246

PATIENT
  Sex: Male

DRUGS (3)
  1. STERIODS (STEROID [Concomitant]
  2. UNSPECIFIED BLOOD PRESSURE MEDICATION (ANTIHYPERTENSIVES) [Concomitant]
  3. ULORIC [Suspect]
     Active Substance: FEBUXOSTAT
     Indication: GOUT
     Dosage: 1 IN 1 DAY
     Route: 048
     Dates: start: 201105, end: 201105

REACTIONS (1)
  - Exfoliative rash [None]

NARRATIVE: CASE EVENT DATE: 201105
